FAERS Safety Report 4346446-1 (Version None)
Quarter: 2004Q2

REPORT INFORMATION
  Report Type: 
  Country: None (occurrence: None)
  Receive Date: 20040426
  Receipt Date: 20030212
  Transmission Date: 20050107
  Serious: No
  Sender: FDA-Public Use
  Company Number: US-BRISTOL-MYERS SQUIBB COMPANY-12188082

PATIENT
  Age: 54 Year
  Sex: Female

DRUGS (9)
  1. CARBOPLATIN [Suspect]
     Indication: OVARIAN CANCER
     Dosage: 600 OR 700 MG
     Route: 042
     Dates: start: 20030207, end: 20030207
  2. TORECAN [Concomitant]
  3. DILANTIN [Concomitant]
  4. VICODIN [Concomitant]
     Dosage: 5/500 MG
  5. TAXOL [Concomitant]
     Indication: OVARIAN CANCER
     Dosage: GIVEN OVER 30 MINUTES
     Dates: start: 20030207
  6. BENADRYL [Concomitant]
     Indication: PREMEDICATION
     Route: 042
  7. DEXAMETHASONE [Concomitant]
     Indication: PREMEDICATION
     Route: 042
  8. CIMETIDINE HCL [Concomitant]
     Indication: PREMEDICATION
     Route: 042
  9. ANZEMET [Concomitant]
     Indication: PREMEDICATION
     Route: 048

REACTIONS (4)
  - CHEST DISCOMFORT [None]
  - DYSPNOEA [None]
  - FEELING HOT [None]
  - PRURITUS GENERALISED [None]
